FAERS Safety Report 16564359 (Version 1)
Quarter: 2019Q3

REPORT INFORMATION
  Report Type: Report from Study
  Country: ES (occurrence: ES)
  Receive Date: 20190712
  Receipt Date: 20190712
  Transmission Date: 20191004
  Serious: Yes (Hospitalization, Other)
  Sender: FDA-Public Use
  Company Number: ES-SA-2019SA179376

PATIENT
  Sex: Female

DRUGS (1)
  1. INSULIN GLARGINE [Suspect]
     Active Substance: INSULIN GLARGINE
     Indication: DIABETES MELLITUS
     Dosage: 60 IU, QD
     Route: 058
     Dates: start: 20180428, end: 20190701

REACTIONS (5)
  - Diabetes mellitus inadequate control [Unknown]
  - Hip fracture [Recovered/Resolved]
  - Blood glucose decreased [Recovering/Resolving]
  - Fall [Unknown]
  - Dementia [Recovering/Resolving]
